FAERS Safety Report 21423150 (Version 1)
Quarter: 2022Q4

REPORT INFORMATION
  Report Type: Spontaneous
  Country: US (occurrence: None)
  Receive Date: 20221006
  Receipt Date: 20221006
  Transmission Date: 20230112
  Serious: No
  Sender: FDA-Public Use
  Company Number: None

PATIENT
  Sex: Female

DRUGS (1)
  1. STELARA [Suspect]
     Active Substance: USTEKINUMAB
     Indication: Psoriasis
     Dosage: 45MG  EVERY 12 WEEKS UNDER THE SKIN?
     Route: 058
     Dates: start: 20170331

REACTIONS (2)
  - Drug ineffective [None]
  - Therapy cessation [None]
